FAERS Safety Report 24964917 (Version 1)
Quarter: 2025Q1

REPORT INFORMATION
  Report Type: Spontaneous
  Country: ID (occurrence: ID)
  Receive Date: 20250213
  Receipt Date: 20250213
  Transmission Date: 20250408
  Serious: Yes (Other)
  Sender: RANBAXY
  Company Number: ID-SUN PHARMACEUTICAL INDUSTRIES LTD-2025RR-494640

PATIENT
  Age: 8 Decade
  Sex: Male

DRUGS (2)
  1. WARFARIN [Suspect]
     Active Substance: WARFARIN
     Indication: Embolic stroke
     Route: 048
  2. VALPROIC ACID [Interacting]
     Active Substance: VALPROIC ACID
     Indication: Epilepsy
     Dosage: UNK, BID
     Route: 048

REACTIONS (4)
  - Conjunctival haemorrhage [Recovered/Resolved]
  - Drug interaction [Recovered/Resolved]
  - Ecchymosis [Recovered/Resolved]
  - International normalised ratio increased [Unknown]
